FAERS Safety Report 11279875 (Version 1)
Quarter: 2015Q3

REPORT INFORMATION
  Report Type: Spontaneous
  Country: US (occurrence: US)
  Receive Date: 20150717
  Receipt Date: 20150717
  Transmission Date: 20151125
  Serious: Yes (Other)
  Sender: FDA-Public Use
  Company Number: PHEH2015US012432

PATIENT
  Sex: Female

DRUGS (1)
  1. GLEEVEC [Suspect]
     Active Substance: IMATINIB MESYLATE
     Indication: PRODUCT USED FOR UNKNOWN INDICATION
     Route: 065

REACTIONS (13)
  - Fatigue [Unknown]
  - Bedridden [Unknown]
  - Intervertebral disc degeneration [Unknown]
  - Weight increased [Unknown]
  - Epistaxis [Unknown]
  - Back pain [Unknown]
  - Multiple fractures [Unknown]
  - Clostridium difficile colitis [Unknown]
  - Alopecia [Unknown]
  - Memory impairment [Unknown]
  - Nausea [Unknown]
  - Renal impairment [Unknown]
  - Infection [Unknown]
